FAERS Safety Report 9040504 (Version 1)
Quarter: 2013Q1

REPORT INFORMATION
  Report Type: Report from Study
  Country: US (occurrence: US)
  Receive Date: 20130129
  Receipt Date: 20130129
  Transmission Date: 20140127
  Serious: No
  Sender: FDA-Public Use
  Company Number: US-ABBOTT-12P-163-0888734-00

PATIENT
  Sex: Female
  Weight: 61.29 kg

DRUGS (4)
  1. HUMIRA 40 MG/ 0.8 ML PRE-FILLED SYRINGE [Suspect]
     Indication: PSORIATIC ARTHROPATHY
  2. GABAPENTIN [Concomitant]
     Indication: FIBROMYALGIA
  3. XANAX [Concomitant]
     Indication: SLEEP DISORDER
  4. TRAMADOL [Concomitant]
     Indication: SLEEP DISORDER

REACTIONS (6)
  - Injection site reaction [Recovered/Resolved]
  - Sinus congestion [Recovered/Resolved]
  - Sinus operation [Not Recovered/Not Resolved]
  - Cough [Recovered/Resolved]
  - Wheezing [Recovered/Resolved]
  - Asthma [Unknown]
